FAERS Safety Report 11654638 (Version 1)
Quarter: 2015Q4

REPORT INFORMATION
  Report Type: Spontaneous
  Country: US (occurrence: None)
  Receive Date: 20151022
  Receipt Date: 20151022
  Transmission Date: 20160304
  Serious: No
  Sender: FDA-Public Use
  Company Number: None

PATIENT
  Age: 54 Year
  Sex: Female
  Weight: 76.66 kg

DRUGS (10)
  1. VITAMIN D [Concomitant]
     Active Substance: CHOLECALCIFEROL
  2. LISINOPRIL. [Suspect]
     Active Substance: LISINOPRIL
  3. NAPROSYN [Concomitant]
     Active Substance: NAPROXEN
  4. ADVOCARE CATALYST [Concomitant]
  5. ADVOCARE FORMULA M [Concomitant]
  6. ADVOCARE SLEEPWORKS [Concomitant]
  7. MAGNESIUM [Concomitant]
     Active Substance: MAGNESIUM
  8. FISH OIL [Concomitant]
     Active Substance: FISH OIL
  9. ALLEGRA [Concomitant]
     Active Substance: FEXOFENADINE HYDROCHLORIDE
  10. CYCLOBENZAPRINE [Suspect]
     Active Substance: CYCLOBENZAPRINE

REACTIONS (6)
  - Syncope [None]
  - Asthenia [None]
  - Pain [None]
  - Hyperhidrosis [None]
  - Depressed level of consciousness [None]
  - Back disorder [None]

NARRATIVE: CASE EVENT DATE: 20151021
